FAERS Safety Report 6456161 (Version 2)
Quarter: 2020Q3

REPORT INFORMATION
  Report Type: Report from Study
  Country: DE (occurrence: DE)
  Receive Date: 20071031
  Receipt Date: 20080718
  Transmission Date: 20201104
  Serious: Yes (Hospitalization)
  Sender: FDA-Public Use
  Company Number: DE-ROCHE-527602

PATIENT
  Age: 77 Year
  Sex: Female
  Weight: 64 kg

DRUGS (6)
  1. CALCIUM [Concomitant]
     Active Substance: CALCIUM
  2. IBANDRONIC ACID. [Suspect]
     Active Substance: IBANDRONIC ACID
     Indication: BREAST CANCER
     Route: 042
     Dates: start: 20071017
  3. CAPECITABINE. [Suspect]
     Active Substance: CAPECITABINE
     Indication: BREAST CANCER
     Dosage: GIVEN SEPARATED IN TWO DAILY DOSES ON DAYS 1?14 EVERY THREE WEEKS.
     Route: 048
     Dates: start: 20071017, end: 20071024
  4. FERROUS SULFATE\FOLIC ACID [Concomitant]
     Active Substance: FERROUS SULFATE\FOLIC ACID
  5. ASPIRIN. [Concomitant]
     Active Substance: ASPIRIN
     Dosage: REPORTED AS 100 ONCE DAILY.
  6. ARTHROTEC [Concomitant]
     Active Substance: DICLOFENAC SODIUM\MISOPROSTOL

REACTIONS (1)
  - Herpes zoster [Recovered/Resolved]

NARRATIVE: CASE EVENT DATE: 20071022
